FAERS Safety Report 13061632 (Version 1)
Quarter: 2016Q4

REPORT INFORMATION
  Report Type: Spontaneous
  Country: US (occurrence: US)
  Receive Date: 20161226
  Receipt Date: 20161226
  Transmission Date: 20170207
  Serious: No
  Sender: FDA-Public Use
  Company Number: US-NOVEN PHARMACEUTICALS, INC.-US2016001797

PATIENT

DRUGS (3)
  1. MINIVELLE [Suspect]
     Active Substance: ESTRADIOL
     Indication: IN VITRO FERTILISATION
     Dosage: USING SIX PATCHES OF 0.1MG TOGETHER, EVERY 72 HOURS
     Route: 062
     Dates: start: 20160518, end: 201607
  2. MINIVELLE [Suspect]
     Active Substance: ESTRADIOL
     Dosage: USING 2 PATCHES OF 0.1MG TOGETHER EVERY 72 HOURS
     Route: 062
     Dates: start: 201607
  3. PROGESTERONE. [Concomitant]
     Active Substance: PROGESTERONE

REACTIONS (5)
  - Product quality issue [Unknown]
  - Off label use [Unknown]
  - Wrong technique in product usage process [Not Recovered/Not Resolved]
  - No adverse event [Unknown]
  - Prescribed overdose [Not Recovered/Not Resolved]

NARRATIVE: CASE EVENT DATE: 2016
